FAERS Safety Report 7434721-3 (Version None)
Quarter: 2011Q2

REPORT INFORMATION
  Report Type: 
  Country: None (occurrence: None)
  Receive Date: 20110425
  Receipt Date: 20110420
  Transmission Date: 20111010
  Serious: Yes (Other)
  Sender: FDA-Public Use
  Company Number: GB-PFIZER INC-2011062822

PATIENT
  Age: 51 Year
  Sex: Female
  Weight: 53 kg

DRUGS (3)
  1. LYRICA [Suspect]
     Indication: NEURALGIA
     Dosage: 50 MG, 3X/DAY
     Route: 048
     Dates: start: 20110201
  2. TRAMADOL [Concomitant]
     Indication: EAR PAIN
     Dosage: 50 MG, 4X/DAY
     Route: 048
     Dates: start: 20110117
  3. TRAMADOL [Concomitant]
     Dosage: 50 MG, AS NEEDED
     Dates: start: 20110117

REACTIONS (9)
  - ASCITES [None]
  - DIARRHOEA [None]
  - DECREASED APPETITE [None]
  - MALAISE [None]
  - GASTRIC DILATATION [None]
  - NEOPLASM MALIGNANT [None]
  - FATIGUE [None]
  - HAEMATEMESIS [None]
  - VOMITING [None]
